FAERS Safety Report 7974560-8 (Version None)
Quarter: 2011Q4

REPORT INFORMATION
  Report Type: 
  Country: None (occurrence: None)
  Receive Date: 20111213
  Receipt Date: 20111201
  Transmission Date: 20120403
  Serious: Yes (Hospitalization)
  Sender: FDA-Public Use
  Company Number: US-ELI_LILLY_AND_COMPANY-US201109006534

PATIENT
  Sex: Female
  Weight: 57.4 kg

DRUGS (21)
  1. FORTEO [Suspect]
     Dosage: 20 UG, QD
     Route: 058
  2. METOPROLOL TARTRATE [Concomitant]
     Dosage: UNK, QD
  3. SIMVASTATIN [Concomitant]
  4. LIPITOR [Concomitant]
     Dosage: UNK, QD
  5. CELEXA [Concomitant]
  6. SENNA-S                            /01035001/ [Concomitant]
  7. NEURONTIN [Concomitant]
  8. BACTRIM [Concomitant]
  9. ASPIRIN [Concomitant]
  10. LISINOPRIL [Concomitant]
  11. AMBIEN [Concomitant]
  12. FORTEO [Suspect]
     Indication: OSTEOPOROSIS
     Dosage: 20 UG, QD
     Route: 058
     Dates: start: 20110101
  13. STALEVO 100 [Concomitant]
     Dosage: UNK, QD
  14. CITRICAL [Concomitant]
     Dosage: UNK, QD
  15. REQUIP [Concomitant]
     Dosage: UNK, QD
  16. TYLENOL                                 /SCH/ [Concomitant]
  17. FISH OIL [Concomitant]
     Dosage: UNK, QD
  18. NITROGLYCERIN [Concomitant]
  19. CITRACAL [Concomitant]
  20. SINEMET [Concomitant]
     Dosage: UNK, QD
  21. M.V.I. [Concomitant]

REACTIONS (5)
  - HAND FRACTURE [None]
  - CLAVICLE FRACTURE [None]
  - PAIN [None]
  - FALL [None]
  - WRIST FRACTURE [None]
